FAERS Safety Report 23916455 (Version 1)
Quarter: 2024Q2

REPORT INFORMATION
  Report Type: Spontaneous
  Country: US (occurrence: US)
  Receive Date: 20240529
  Receipt Date: 20240529
  Transmission Date: 20240715
  Serious: No
  Sender: FDA-Public Use
  Company Number: US-ABBVIE-5774006

PATIENT
  Sex: Female

DRUGS (1)
  1. HUMIRA [Suspect]
     Active Substance: ADALIMUMAB
     Indication: Product used for unknown indication
     Route: 058

REACTIONS (6)
  - Brain fog [Not Recovered/Not Resolved]
  - Poor quality sleep [Unknown]
  - Headache [Unknown]
  - Vision blurred [Unknown]
  - Cognitive disorder [Unknown]
  - Disturbance in attention [Unknown]
